FAERS Safety Report 12256238 (Version 1)
Quarter: 2016Q2

REPORT INFORMATION
  Report Type: Spontaneous
  Country: US (occurrence: US)
  Receive Date: 20160412
  Receipt Date: 20160412
  Transmission Date: 20160815
  Serious: No
  Sender: FDA-Public Use
  Company Number: US-AUROBINDO-AUR-APL-2015-04067

PATIENT
  Sex: Female

DRUGS (12)
  1. PANTOPRAZOLE 40MG [Suspect]
     Active Substance: PANTOPRAZOLE SODIUM
     Indication: PRODUCT USED FOR UNKNOWN INDICATION
     Dosage: TAKE 1 TABLET  TWO TIMES A DAY 30 MINUTES BEFORE BREAKFAST ADN DINNER
     Route: 048
     Dates: start: 20140210
  2. ATIVAN [Suspect]
     Active Substance: LORAZEPAM
     Indication: PRODUCT USED FOR UNKNOWN INDICATION
     Dosage: 1/2-1 TAB PO BID, PRN
     Route: 048
     Dates: start: 20110602
  3. LEVEMIR [Suspect]
     Active Substance: INSULIN DETEMIR
     Indication: PRODUCT USED FOR UNKNOWN INDICATION
     Dosage: INJECT 55 UNITS, TWO TIMES A DAY
     Route: 058
     Dates: start: 20100212
  4. METFORMIN HYDROCHLORIDE TABLETS USP 1000 MG [Suspect]
     Active Substance: METFORMIN HYDROCHLORIDE
     Indication: PRODUCT USED FOR UNKNOWN INDICATION
     Dosage: 1000 MG, TWO TIMES A DAY
     Route: 048
     Dates: start: 20070123
  5. NITROSTAT [Suspect]
     Active Substance: NITROGLYCERIN
     Indication: CHEST PAIN
     Dosage: 1 PO UNDER TONGUE Q 5 MIN X 3 PRN
     Route: 060
  6. ASPIRIN. [Suspect]
     Active Substance: ASPIRIN
     Indication: PRODUCT USED FOR UNKNOWN INDICATION
     Dosage: UNK
     Route: 048
  7. ACETAMINOPHEN\HYDROCODONE BITARTRATE [Suspect]
     Active Substance: ACETAMINOPHEN\HYDROCODONE BITARTRATE
     Indication: PRODUCT USED FOR UNKNOWN INDICATION
     Dosage: TAKE 1 TABLET EVERY 12 HOURS, PRN
     Route: 048
     Dates: start: 20040316
  8. LASIX [Suspect]
     Active Substance: FUROSEMIDE
     Indication: PRODUCT USED FOR UNKNOWN INDICATION
     Dosage: 20 MG, ONE TABLET ONCE A DAY
     Route: 048
     Dates: start: 20060502
  9. PRAVASTATIN SODIUM. [Suspect]
     Active Substance: PRAVASTATIN SODIUM
     Indication: PRODUCT USED FOR UNKNOWN INDICATION
     Dosage: TAKE 1 TABLET, ONCE A DAY
     Route: 048
     Dates: start: 20130515
  10. FLUTICASONE PROPIONATE. [Suspect]
     Active Substance: FLUTICASONE PROPIONATE
     Indication: PRODUCT USED FOR UNKNOWN INDICATION
     Dosage: 2 SPRAYS EACH NOSTRIL ONCE A DAY
     Route: 045
     Dates: start: 20150102
  11. LYRICA [Suspect]
     Active Substance: PREGABALIN
     Indication: PRODUCT USED FOR UNKNOWN INDICATION
     Dosage: TAKE 1,CAPSULE TWO TIMES A DAY
     Route: 048
     Dates: start: 20140623
  12. VALSARTAN/HYDROCHLOROTHIAZIDE [Suspect]
     Active Substance: HYDROCHLOROTHIAZIDE\VALSARTAN
     Indication: PRODUCT USED FOR UNKNOWN INDICATION
     Dosage: 1 TABLET, ONCE A DAY
     Route: 048
     Dates: start: 20130926

REACTIONS (5)
  - Back injury [Unknown]
  - Fall [Unknown]
  - Joint injury [Unknown]
  - Road traffic accident [Unknown]
  - Nerve injury [Unknown]
